FAERS Safety Report 6431853-3 (Version None)
Quarter: 2009Q4

REPORT INFORMATION
  Report Type: 
  Country: None (occurrence: None)
  Receive Date: 20091108
  Receipt Date: 20091028
  Transmission Date: 20100525
  Serious: Yes (Other)
  Sender: FDA-Public Use
  Company Number: PHHY2009CA47079

PATIENT
  Sex: Male

DRUGS (2)
  1. EXJADE [Suspect]
     Indication: MYELOFIBROSIS
     Dosage: 1250 MG, UNK
     Route: 048
     Dates: start: 20090919
  2. ALLOPURINOL [Concomitant]
     Dosage: ONE TABLET EVERY NIGHT

REACTIONS (2)
  - CONSTIPATION [None]
  - RASH PRURITIC [None]
